FAERS Safety Report 13419428 (Version 2)
Quarter: 2018Q3

REPORT INFORMATION
  Report Type: Spontaneous
  Country: RU (occurrence: RU)
  Receive Date: 20170407
  Receipt Date: 20180718
  Transmission Date: 20181010
  Serious: Yes (Hospitalization)
  Sender: FDA-Public Use
  Company Number: RU-ASTRAZENECA-2017SE34734

PATIENT
  Age: 84 Year
  Sex: Male
  Weight: 61 kg

DRUGS (8)
  1. ATORIS [Concomitant]
     Active Substance: ATORVASTATIN CALCIUM
  2. BRILINTA [Suspect]
     Active Substance: TICAGRELOR
     Indication: ANGINA UNSTABLE
     Route: 048
     Dates: start: 201604
  3. NITROGLYCERIN. [Concomitant]
     Active Substance: NITROGLYCERIN
  4. CONCOR [Concomitant]
     Active Substance: BISOPROLOL FUMARATE
  5. EUTHYROX [Concomitant]
     Active Substance: LEVOTHYROXINE SODIUM
  6. BRILINTA [Suspect]
     Active Substance: TICAGRELOR
     Indication: STENT PLACEMENT
     Route: 048
     Dates: start: 201604
  7. AMLOPRES [Concomitant]
  8. CARDIOMAGNYL [Concomitant]
     Active Substance: ASPIRIN\MAGNESIUM HYDROXIDE

REACTIONS (6)
  - Chest pain [Recovered/Resolved]
  - Presyncope [Recovered/Resolved]
  - Off label use [Unknown]
  - Myocardial ischaemia [Recovered/Resolved]
  - Contusion [Unknown]
  - Product use issue [Unknown]

NARRATIVE: CASE EVENT DATE: 201611
